FAERS Safety Report 12204166 (Version 1)
Quarter: 2016Q1

REPORT INFORMATION
  Report Type: Spontaneous
  Country: US (occurrence: None)
  Receive Date: 20160322
  Receipt Date: 20160322
  Transmission Date: 20160526
  Serious: Yes (Other)
  Sender: FDA-Public Use
  Company Number: None

PATIENT
  Age: 76 Year
  Sex: Female

DRUGS (2)
  1. CANDESARTAN 8 MG [Suspect]
     Active Substance: CANDESARTAN
  2. CANDESARTAN [Suspect]
     Active Substance: CANDESARTAN

REACTIONS (2)
  - Hyperkalaemia [None]
  - Dyspnoea [None]

NARRATIVE: CASE EVENT DATE: 20150112
